FAERS Safety Report 5494288-6 (Version None)
Quarter: 2007Q4

REPORT INFORMATION
  Report Type: 
  Country: None (occurrence: None)
  Receive Date: 20071012
  Receipt Date: 20070830
  Transmission Date: 20080405
  Serious: Yes (Hospitalization, Other)
  Sender: FDA-Public Use
  Company Number: US-2007-032694

PATIENT
  Age: 47 Year
  Sex: Female
  Weight: 84 kg

DRUGS (3)
  1. YAZ [Suspect]
     Indication: ORAL CONTRACEPTION
     Dosage: 1 TAB(S), 1X/DAY, ORAL
     Route: 048
     Dates: start: 20070602, end: 20070816
  2. PROZAC [Concomitant]
  3. ALLEGRA (FEXOFENADINE HYDROCHLORIDE) [Concomitant]

REACTIONS (1)
  - PAIN IN EXTREMITY [None]
